FAERS Safety Report 17654192 (Version 2)
Quarter: 2020Q2

REPORT INFORMATION
  Report Type: Spontaneous
  Country: DE (occurrence: DE)
  Receive Date: 20200410
  Receipt Date: 20200505
  Transmission Date: 20200713
  Serious: Yes (Other)
  Sender: FDA-Public Use
  Company Number: DE-B.I. PHARMACEUTICALS,INC./RIDGEFIELD-2020-12-018289

PATIENT
  Age: 66 Year
  Sex: Male
  Weight: 90.5 kg

DRUGS (9)
  1. MICARDIS [Suspect]
     Active Substance: TELMISARTAN
     Indication: STENT PLACEMENT
     Dosage: 1X TAGLICH MORGENS
     Route: 065
     Dates: start: 2010, end: 2013
  2. TELMISARTAN RATIOPHARM [Suspect]
     Active Substance: TELMISARTAN
     Indication: MYOCARDIAL INFARCTION
     Dosage: 1X TAGLICH MORGENS
     Route: 065
     Dates: start: 2013, end: 202002
  3. HERZASS [Concomitant]
     Indication: PRODUCT USED FOR UNKNOWN INDICATION
     Dosage: AM MITTAG 1 TABL.
     Route: 065
  4. TELMISARTAN MICRO LABS [Suspect]
     Active Substance: TELMISARTAN
     Indication: STENT PLACEMENT
     Dosage: 1X TAGLICH MORGENS
     Route: 065
     Dates: start: 202003
  5. MICARDIS [Suspect]
     Active Substance: TELMISARTAN
     Indication: MYOCARDIAL INFARCTION
  6. TELMISARTAN RATIOPHARM [Suspect]
     Active Substance: TELMISARTAN
     Indication: STENT PLACEMENT
  7. BISOPROLOL RATIOPHARM [Concomitant]
     Active Substance: BISOPROLOL
     Indication: PRODUCT USED FOR UNKNOWN INDICATION
     Dosage: AM MORGEN 1/2 TABLETTE
     Route: 065
  8. TELMISARTAN MICRO LABS [Suspect]
     Active Substance: TELMISARTAN
     Indication: MYOCARDIAL INFARCTION
  9. SIMVABETA [Concomitant]
     Active Substance: SIMVASTATIN
     Indication: PRODUCT USED FOR UNKNOWN INDICATION
     Dosage: 1 TABLETTE AM ABEND
     Route: 065

REACTIONS (7)
  - Larynx irritation [Recovered/Resolved]
  - Throat clearing [Unknown]
  - Nasopharyngitis [Unknown]
  - Pharyngitis [Unknown]
  - Cough [Recovered/Resolved]
  - Respiratory tract infection [Unknown]
  - Cough [Unknown]

NARRATIVE: CASE EVENT DATE: 20200330
